FAERS Safety Report 6975720-5 (Version None)
Quarter: 2010Q3

REPORT INFORMATION
  Report Type: 
  Country: None (occurrence: None)
  Receive Date: 20100910
  Receipt Date: 20090326
  Transmission Date: 20110219
  Serious: No
  Sender: FDA-Public Use
  Company Number: US-WYE-H08734109

PATIENT
  Age: 24 Year
  Sex: Male

DRUGS (3)
  1. PRISTIQ [Suspect]
     Indication: DEPRESSION
     Dosage: 50 MG, UNSPECIFIED FREQUENCY
  2. PRISTIQ [Suspect]
     Indication: DYSTHYMIC DISORDER
  3. PRISTIQ [Suspect]
     Indication: ANXIETY

REACTIONS (3)
  - DYSURIA [None]
  - MICTURITION URGENCY [None]
  - URINE FLOW DECREASED [None]
